FAERS Safety Report 14107925 (Version 3)
Quarter: 2017Q4

REPORT INFORMATION
  Report Type: Spontaneous
  Country: DO (occurrence: DO)
  Receive Date: 20171019
  Receipt Date: 20171108
  Transmission Date: 20180321
  Serious: Yes (Other)
  Sender: FDA-Public Use
  Company Number: DO-PFIZER INC-2017449286

PATIENT
  Age: 51 Year
  Sex: Male

DRUGS (3)
  1. ADVIL [Suspect]
     Active Substance: IBUPROFEN
     Indication: INFLAMMATION
  2. ADVIL [Suspect]
     Active Substance: IBUPROFEN
     Indication: PAIN
     Dosage: 400 MG, 3X/DAY (EVERY 8 HOURS)
  3. ADVIL [Suspect]
     Active Substance: IBUPROFEN
     Indication: SKIN FISSURES

REACTIONS (2)
  - Gait inability [Recovered/Resolved]
  - Drug ineffective [Recovered/Resolved]
